FAERS Safety Report 10598188 (Version 2)
Quarter: 2015Q1

REPORT INFORMATION
  Report Type: Spontaneous
  Country: DE (occurrence: None)
  Receive Date: 20141119
  Receipt Date: 20150218
  Transmission Date: 20150720
  Serious: Yes (Other)
  Sender: FDA-Public Use
  Company Number: KAD201411-001491

PATIENT

DRUGS (3)
  1. RIBAVIRIN (RIBAVIRIN) [Suspect]
     Active Substance: RIBAVIRIN
     Indication: HISTOLOGY
  2. PEGYLATED INTERFERON NOS [Suspect]
     Active Substance: PEGINTERFERON ALFA-2A OR PEGINTERFERON ALFA-2B OR PEGINTERFERON BETA-1A OR PEGINTERFERON LAMBDA-1A
     Indication: HISTOLOGY
  3. TELAPREVIR (TELAPREVIR) [Suspect]
     Active Substance: TELAPREVIR
     Indication: HISTOLOGY

REACTIONS (1)
  - Blood disorder [None]
